FAERS Safety Report 8988222 (Version 3)
Quarter: 2013Q2

REPORT INFORMATION
  Report Type: Report from Study
  Country: BR (occurrence: BR)
  Receive Date: 20121227
  Receipt Date: 20130417
  Transmission Date: 20140414
  Serious: Yes (Hospitalization)
  Sender: FDA-Public Use
  Company Number: BR-ROCHE-1172120

PATIENT
  Sex: Male
  Weight: 74 kg

DRUGS (6)
  1. MABTHERA [Suspect]
     Indication: RHEUMATOID ARTHRITIS
     Route: 065
     Dates: start: 20110503, end: 20121002
  2. MABTHERA [Suspect]
     Route: 042
     Dates: start: 20121002
  3. PREDNISONE [Concomitant]
     Indication: RHEUMATOID ARTHRITIS
  4. METHOTREXATE [Concomitant]
     Indication: RHEUMATOID ARTHRITIS
  5. TRAMAL [Concomitant]
     Indication: PAIN
  6. PRAVASTATIN [Concomitant]

REACTIONS (3)
  - Blister [Recovering/Resolving]
  - Blister [Unknown]
  - Angiopathy [Unknown]
